FAERS Safety Report 8345574-3 (Version None)
Quarter: 2012Q2

REPORT INFORMATION
  Report Type: 
  Country: None (occurrence: None)
  Receive Date: 20120508
  Receipt Date: 20120206
  Transmission Date: 20120825
  Serious: No
  Sender: FDA-Public Use
  Company Number: -BAUSCH-2012BL000875

PATIENT
  Sex: Female

DRUGS (1)
  1. ALREX [Suspect]
     Indication: INFLAMMATION

REACTIONS (1)
  - SWELLING FACE [None]
